FAERS Safety Report 23873470 (Version 2)
Quarter: 2024Q2

REPORT INFORMATION
  Report Type: Spontaneous
  Country: US (occurrence: US)
  Receive Date: 20240520
  Receipt Date: 20240527
  Transmission Date: 20240716
  Serious: Yes (Disabling)
  Sender: FDA-Public Use
  Company Number: US-CELLTRION INC.-2024US011300

PATIENT

DRUGS (1)
  1. TRUXIMA [Suspect]
     Active Substance: RITUXIMAB-ABBS
     Indication: Neuromyelitis optica spectrum disorder
     Dosage: 10 MILLIGRAM PER MILLILITRE; EVERY 6 MONTHS VIA IV INFUSION, PATIENT IS UNSURE WHAT HER DOSE IS
     Route: 042

REACTIONS (3)
  - Impaired work ability [Unknown]
  - Pruritus [Unknown]
  - Intentional product use issue [Unknown]
